FAERS Safety Report 4404739-3 (Version None)
Quarter: 2004Q3

REPORT INFORMATION
  Report Type: 
  Country: None (occurrence: None)
  Receive Date: 20040715
  Receipt Date: 20040709
  Transmission Date: 20050211
  Serious: Yes (Death)
  Sender: FDA-Public Use
  Company Number: US-JNJFOC-20040404782

PATIENT
  Age: 67 Year
  Sex: Female

DRUGS (3)
  1. PANCREASE (PANCRELIPASE) CAPSULES [Suspect]
     Indication: PANCREATIC CARCINOMA
     Dosage: 10-12 CAPSULES DAILY
     Dates: start: 20020601, end: 20040309
  2. LEVOTHYROXINE (TABLETS) [Concomitant]
  3. ZANTAC [Concomitant]

REACTIONS (20)
  - ABDOMINAL DISCOMFORT [None]
  - ANAEMIA [None]
  - BACTERAEMIA [None]
  - BACTERIAL INFECTION [None]
  - COAGULOPATHY [None]
  - COMPUTERISED TOMOGRAM ABNORMAL [None]
  - HEPATIC NECROSIS [None]
  - HYPONATRAEMIA [None]
  - HYPOTHYROIDISM [None]
  - HYPOXIA [None]
  - LIVER ABSCESS [None]
  - LUNG ADENOCARCINOMA [None]
  - MALIGNANT NEOPLASM PROGRESSION [None]
  - MALNUTRITION [None]
  - METASTASES TO LIVER [None]
  - PAIN [None]
  - PANCREATIC CARCINOMA METASTATIC [None]
  - PANCREATIC CARCINOMA RECURRENT [None]
  - PLEURITIC PAIN [None]
  - THROMBOCYTOPENIA [None]
